FAERS Safety Report 10421953 (Version 2)
Quarter: 2014Q3

REPORT INFORMATION
  Report Type: Report from Study
  Country: NL (occurrence: NL)
  Receive Date: 20140901
  Receipt Date: 20140922
  Transmission Date: 20150326
  Serious: Yes (Death, Other)
  Sender: FDA-Public Use
  Company Number: PHHY2014NL109062

PATIENT
  Age: 89 Year
  Sex: Male
  Weight: 78 kg

DRUGS (10)
  1. PANTAZOLE [Concomitant]
  2. SANDOSTATIN LAR DEPOT [Suspect]
     Active Substance: OCTREOTIDE ACETATE
     Indication: GASTROINTESTINAL HAEMORRHAGE
     Dosage: 20 MG/2 ML, ONCE PER 4 WEEKS
     Route: 030
  3. ASCAL [Concomitant]
     Active Substance: CARBASALATE
  4. FERROFUMARAAT [Concomitant]
  5. METPROLOL [Concomitant]
     Active Substance: METOPROLOL
  6. SANDOSTATIN LAR DEPOT [Suspect]
     Active Substance: OCTREOTIDE ACETATE
     Indication: OFF LABEL USE
  7. SIMVA [Concomitant]
  8. MESALAZINE [Concomitant]
     Active Substance: MESALAMINE
  9. FERINJECT [Concomitant]
     Active Substance: FERRIC CARBOXYMALTOSE
  10. HCT [Concomitant]
     Active Substance: HYDROCHLOROTHIAZIDE

REACTIONS (3)
  - Cardiovascular disorder [Unknown]
  - Death [Fatal]
  - Anaemia [Unknown]

NARRATIVE: CASE EVENT DATE: 20140823
